FAERS Safety Report 19953486 (Version 1)
Quarter: 2021Q4

REPORT INFORMATION
  Report Type: Spontaneous
  Country: US (occurrence: US)
  Receive Date: 20211013
  Receipt Date: 20211013
  Transmission Date: 20220303
  Serious: No
  Sender: FDA-Public Use
  Company Number: US-GILEAD-2021-0551981

PATIENT
  Age: 69 Year
  Sex: Male

DRUGS (3)
  1. CAYSTON [Suspect]
     Active Substance: AZTREONAM
     Indication: Mycobacterium avium complex infection
     Dosage: UNK, TID
     Route: 065
  2. CAYSTON [Suspect]
     Active Substance: AZTREONAM
     Indication: Chronic obstructive pulmonary disease
  3. CAYSTON [Suspect]
     Active Substance: AZTREONAM
     Indication: Pneumonia pseudomonal

REACTIONS (2)
  - Off label use [Unknown]
  - Intentional dose omission [Not Recovered/Not Resolved]
